FAERS Safety Report 12369527 (Version 1)
Quarter: 2016Q2

REPORT INFORMATION
  Report Type: Spontaneous
  Country: CA (occurrence: CA)
  Receive Date: 20160516
  Receipt Date: 20160516
  Transmission Date: 20160815
  Serious: Yes (Life-Threatening)
  Sender: FDA-Public Use
  Company Number: CA-009507513-1605CAN005186

PATIENT
  Age: 24 Month
  Sex: Female

DRUGS (2)
  1. ORGARAN [Suspect]
     Active Substance: DANAPAROID SODIUM
     Indication: PRODUCT USED FOR UNKNOWN INDICATION
     Dosage: 24 IU, 1 IN 1 HOUR, 576 IU DAILY
     Route: 042
  2. HEPARIN SODIUM. [Concomitant]
     Active Substance: HEPARIN SODIUM
     Indication: PRODUCT USED FOR UNKNOWN INDICATION
     Route: 042

REACTIONS (8)
  - Respiratory distress [Recovered/Resolved]
  - Hepatomegaly [Recovered/Resolved]
  - Cardiac tamponade [Recovered/Resolved]
  - Haemorrhage [Recovered/Resolved]
  - Coagulopathy [Recovered/Resolved]
  - Peripheral venous disease [Recovered/Resolved]
  - Hepatic function abnormal [Recovered/Resolved]
  - Thrombosis [Recovered/Resolved]
